FAERS Safety Report 9370715 (Version 1)
Quarter: 2013Q2

REPORT INFORMATION
  Report Type: Spontaneous
  Country: FR (occurrence: FR)
  Receive Date: 20130626
  Receipt Date: 20130626
  Transmission Date: 20140414
  Serious: Yes (Hospitalization)
  Sender: FDA-Public Use
  Company Number: FR-TEVA-414079ISR

PATIENT
  Age: 75 Year
  Sex: Male

DRUGS (15)
  1. FUROSEMIDE [Suspect]
     Dosage: 40 MILLIGRAM DAILY;
     Route: 048
     Dates: start: 20130523, end: 20130610
  2. ALPRAZOLAM [Concomitant]
     Dosage: .25 MILLIGRAM DAILY;
  3. AVLOCARDYL [Concomitant]
     Dosage: 20 MILLIGRAM DAILY;
  4. ESOMEPRAZOLE [Concomitant]
     Dosage: 20 MILLIGRAM DAILY;
  5. GLUCOPHAGE [Concomitant]
     Dosage: (1, 3 TIMES A DAY),
  6. PREVISCAN [Concomitant]
     Dosage: (1/2 TABLET IN THE EVENING),
  7. PERMIXON [Concomitant]
     Dosage: 320 MILLIGRAM DAILY; (1 TABLET TWICE A DAY),
  8. MONURIL [Concomitant]
     Dosage: (1 BAG /DAY, 1 WEEK OUT OF 2),
  9. LOMEFLOXACIN [Concomitant]
     Dosage: (1 TABLET DURING 3 DAYS1 WEEK OUT OF 2 (ALTERNATING WITH MONURIL
  10. VENLAFAXINE [Concomitant]
     Dosage: 75 MILLIGRAM DAILY;
  11. LANTUS [Concomitant]
  12. HUMALOG [Concomitant]
  13. SMECTA [Concomitant]
  14. TIORFAN [Concomitant]
  15. LOPERAMIDE [Concomitant]

REACTIONS (1)
  - Somnolence [Recovering/Resolving]
